FAERS Safety Report 6748551-9 (Version None)
Quarter: 2010Q2

REPORT INFORMATION
  Report Type: 
  Country: None (occurrence: None)
  Receive Date: 20100601
  Receipt Date: 20100514
  Transmission Date: 20101027
  Serious: Yes (Other)
  Sender: FDA-Public Use
  Company Number: US-BAYER-200942929NA

PATIENT
  Age: 22 Year
  Sex: Female

DRUGS (1)
  1. OCELLA [Suspect]
     Indication: ACNE
     Route: 048
     Dates: start: 20080801, end: 20090501

REACTIONS (1)
  - GALLBLADDER INJURY [None]
